FAERS Safety Report 26013417 (Version 1)
Quarter: 2025Q4

REPORT INFORMATION
  Report Type: Spontaneous
  Country: EU (occurrence: EU)
  Receive Date: 20251107
  Receipt Date: 20251107
  Transmission Date: 20260118
  Serious: Yes (Other)
  Sender: NOVARTIS
  Company Number: EU-002147023-NVSC2025HR148209

PATIENT
  Sex: Female

DRUGS (2)
  1. TASIGNA [Suspect]
     Active Substance: NILOTINIB
     Indication: Chronic myeloid leukaemia
     Dosage: UNK
     Route: 065
     Dates: start: 201503, end: 201503
  2. TASIGNA [Suspect]
     Active Substance: NILOTINIB
     Dosage: UNK
     Route: 065

REACTIONS (18)
  - Granulocytopenia [Unknown]
  - Aortic stenosis [Unknown]
  - Carotid artery stenosis [Unknown]
  - Carotid arteriosclerosis [Unknown]
  - Peripheral artery stenosis [Unknown]
  - Heavy menstrual bleeding [Unknown]
  - Hypertension [Unknown]
  - Hyperlipidaemia [Unknown]
  - Muscle spasms [Unknown]
  - Left ventricular hypertrophy [Unknown]
  - Left atrial enlargement [Unknown]
  - Pulmonary arterial wedge pressure increased [Unknown]
  - Arterial occlusive disease [Unknown]
  - Blood pressure systolic increased [Unknown]
  - Diastolic dysfunction [Unknown]
  - Paraesthesia [Unknown]
  - Menstruation irregular [Unknown]
  - Sideroblastic anaemia [Unknown]

NARRATIVE: CASE EVENT DATE: 20150301
